FAERS Safety Report 4294469-3 (Version None)
Quarter: 2004Q1

REPORT INFORMATION
  Report Type: 
  Country: None (occurrence: None)
  Receive Date: 20040211
  Receipt Date: 20040130
  Transmission Date: 20041129
  Serious: Yes (Hospitalization)
  Sender: FDA-Public Use
  Company Number: 2004006229

PATIENT
  Age: 59 Year
  Sex: Male

DRUGS (1)
  1. VFEND [Suspect]
     Indication: LUNG INFILTRATION
     Dosage: 400 MG (BID), ORAL
     Route: 048
     Dates: start: 20031201, end: 20040130

REACTIONS (4)
  - APATHY [None]
  - HEADACHE [None]
  - MENTAL DISORDER DUE TO A GENERAL MEDICAL CONDITION [None]
  - VISUAL DISTURBANCE [None]
